FAERS Safety Report 9984954 (Version 1)
Quarter: 2014Q1

REPORT INFORMATION
  Report Type: Report from Study
  Country: US (occurrence: US)
  Receive Date: 20140307
  Receipt Date: 20140307
  Transmission Date: 20141002
  Serious: No
  Sender: FDA-Public Use
  Company Number: US-ABBVIE-13P-163-1184629-00

PATIENT
  Age: 59 Year
  Sex: Male

DRUGS (5)
  1. LIPITOR [Concomitant]
     Indication: BLOOD CHOLESTEROL INCREASED
     Route: 048
  2. DIOVAN [Concomitant]
     Indication: BLOOD CHOLESTEROL INCREASED
     Route: 048
  3. ALLOPURINOL [Concomitant]
     Indication: GOUT
     Route: 048
  4. HUMIRA [Suspect]
     Indication: PALINDROMIC RHEUMATISM
     Dates: start: 2011, end: 201303
  5. TRICHLORACETIC ACD [Concomitant]
     Indication: BLOOD CHOLESTEROL INCREASED
     Route: 048

REACTIONS (1)
  - Musculoskeletal pain [Not Recovered/Not Resolved]
